FAERS Safety Report 12286120 (Version 1)
Quarter: 2016Q2

REPORT INFORMATION
  Report Type: Spontaneous
  Country: GB (occurrence: GB)
  Receive Date: 20160420
  Receipt Date: 20160420
  Transmission Date: 20160815
  Serious: Yes (Other)
  Sender: FDA-Public Use
  Company Number: GB-SUN PHARMACEUTICAL INDUSTRIES LTD-2016R1-114859

PATIENT
  Age: 70 Year
  Sex: Female

DRUGS (1)
  1. TRIAMCINOLONE [Suspect]
     Active Substance: TRIAMCINOLONE
     Indication: TENOSYNOVITIS STENOSANS
     Dosage: 0.25 ML TRIAMCINOLONE 40 MG/ML
     Route: 065

REACTIONS (3)
  - Injection site atrophy [Unknown]
  - Skin atrophy [Unknown]
  - Injury [Unknown]
